FAERS Safety Report 6496258-8 (Version None)
Quarter: 2009Q4

REPORT INFORMATION
  Report Type: 
  Country: None (occurrence: None)
  Receive Date: 20091214
  Receipt Date: 20090605
  Transmission Date: 20100525
  Serious: No
  Sender: FDA-Public Use
  Company Number: US-BRISTOL-MYERS SQUIBB COMPANY-14652457

PATIENT
  Age: 38 Year
  Sex: Female
  Weight: 86 kg

DRUGS (3)
  1. ABILIFY [Suspect]
     Indication: BIPOLAR DISORDER
     Dosage: TAKEN 9-10 MONTHS AGO  DISCONTINUED AFTER 3.5 MONTHS
  2. ABILIFY [Suspect]
     Indication: SCHIZOPHRENIA
     Dosage: TAKEN 9-10 MONTHS AGO  DISCONTINUED AFTER 3.5 MONTHS
  3. DEPAKOTE [Concomitant]

REACTIONS (2)
  - NIGHTMARE [None]
  - SUSPICIOUSNESS [None]
